FAERS Safety Report 13910333 (Version 1)
Quarter: 2017Q3

REPORT INFORMATION
  Report Type: Spontaneous
  Country: US (occurrence: None)
  Receive Date: 20170822
  Receipt Date: 20170822
  Transmission Date: 20171127
  Serious: No
  Sender: FDA-Public Use
  Company Number: None

PATIENT
  Age: 64 Year
  Sex: Female

DRUGS (3)
  1. AZELASTINE [Concomitant]
     Active Substance: AZELASTINE
  2. AZITHROMYCIN ANHYDROUS. [Concomitant]
     Active Substance: AZITHROMYCIN ANHYDROUS
  3. IBRANCE [Suspect]
     Active Substance: PALBOCICLIB
     Indication: NEOPLASM MALIGNANT
     Dosage: 125 MG DAILY FOR 21 DA BY MOUTH
     Route: 048
     Dates: start: 20160503, end: 20170719

REACTIONS (3)
  - Anaemia [None]
  - Thrombocytopenia [None]
  - Therapy change [None]

NARRATIVE: CASE EVENT DATE: 20170718
